APPROVED DRUG PRODUCT: GEMFIBROZIL
Active Ingredient: GEMFIBROZIL
Strength: 600MG
Dosage Form/Route: TABLET;ORAL
Application: A074270 | Product #001 | TE Code: AB
Applicant: CHARTWELL MOLECULES LLC
Approved: Sep 27, 1993 | RLD: No | RS: No | Type: RX